FAERS Safety Report 6554026-2 (Version None)
Quarter: 2010Q1

REPORT INFORMATION
  Report Type: 
  Country: None (occurrence: None)
  Receive Date: 20100125
  Receipt Date: 20100125
  Transmission Date: 20100710
  Serious: Yes (Other)
  Sender: FDA-Public Use
  Company Number: None

PATIENT
  Age: 38 Year
  Sex: Female
  Weight: 76.6579 kg

DRUGS (1)
  1. THYROID TAB [Suspect]
     Indication: HYPOTHYROIDISM
     Dosage: 75 MG DAILY PO
     Route: 048
     Dates: start: 19990101, end: 20091205

REACTIONS (7)
  - ALOPECIA [None]
  - DRY SKIN [None]
  - FEELING COLD [None]
  - HYPERTHYROIDISM [None]
  - IMPAIRED HEALING [None]
  - LIBIDO DECREASED [None]
  - SINUSITIS [None]
